FAERS Safety Report 8187846-1 (Version None)
Quarter: 2012Q1

REPORT INFORMATION
  Report Type: 
  Country: None (occurrence: None)
  Receive Date: 20120302
  Receipt Date: 20120221
  Transmission Date: 20120608
  Serious: Yes (Disabling)
  Sender: FDA-Public Use
  Company Number: 2012SP009866

PATIENT
  Age: 28 Year
  Sex: Female
  Weight: 91.173 kg

DRUGS (1)
  1. IMPLANON [Suspect]
     Indication: CONTRACEPTION
     Dosage: 1 DF

REACTIONS (3)
  - CONTUSION [None]
  - PAIN [None]
  - SKIN LESION [None]
